FAERS Safety Report 5494617-3 (Version None)
Quarter: 2007Q4

REPORT INFORMATION
  Report Type: 
  Country: None (occurrence: None)
  Receive Date: 20071024
  Receipt Date: 20070910
  Transmission Date: 20080405
  Serious: Yes (Death)
  Sender: FDA-Public Use
  Company Number: US-ASTRAZENECA-2006UW28027

PATIENT
  Sex: Female

DRUGS (4)
  1. SEROQUEL [Suspect]
     Indication: DEPRESSION
     Route: 048
     Dates: start: 20030609, end: 20031001
  2. RISPERDAL [Suspect]
  3. ZYPREXA [Suspect]
     Indication: DEPRESSION
     Dates: start: 20020101, end: 20030101
  4. ZYPREXA [Suspect]
     Dates: start: 20020101, end: 20030101

REACTIONS (3)
  - ARTERIOSCLEROSIS [None]
  - CARDIAC FAILURE CONGESTIVE [None]
  - DIABETES MELLITUS [None]
